FAERS Safety Report 13662297 (Version 1)
Quarter: 2017Q2

REPORT INFORMATION
  Report Type: Report from Study
  Country: US (occurrence: US)
  Receive Date: 20170617
  Receipt Date: 20170617
  Transmission Date: 20170830
  Serious: Yes (Death)
  Sender: FDA-Public Use
  Company Number: US-TORRENT-00003040

PATIENT
  Age: 64 Year
  Sex: Male

DRUGS (4)
  1. TRAZODONE [Suspect]
     Active Substance: TRAZODONE HYDROCHLORIDE
  2. LAMOTRIGINE. [Suspect]
     Active Substance: LAMOTRIGINE
  3. SILDENAFIL. [Suspect]
     Active Substance: SILDENAFIL
  4. COCAINE [Suspect]
     Active Substance: COCAINE

REACTIONS (3)
  - Toxicity to various agents [Fatal]
  - Intentional overdose [None]
  - Cardio-respiratory arrest [Fatal]
